FAERS Safety Report 9345016 (Version 1)
Quarter: 2013Q2

REPORT INFORMATION
  Report Type: Spontaneous
  Country: IT (occurrence: IT)
  Receive Date: 20130612
  Receipt Date: 20130612
  Transmission Date: 20140414
  Serious: Yes (Hospitalization)
  Sender: FDA-Public Use
  Company Number: IT-PERRIGO-13IT006065

PATIENT
  Age: 22 Year
  Sex: Male

DRUGS (4)
  1. MESALAMINE RX 66.667 MG/ML 2N9 [Suspect]
     Indication: COLITIS ULCERATIVE
     Dosage: 2 G, QD, BEDTIME
     Route: 054
     Dates: start: 20100402, end: 20100422
  2. MESALAMINE RX 66.667 MG/ML 2N9 [Suspect]
     Dosage: 1.5 G, QD
     Route: 054
     Dates: start: 20110315, end: 20110405
  3. MESALAMINE [Suspect]
     Indication: COLITIS ULCERATIVE
     Dosage: 1600 MG BID
     Route: 048
     Dates: start: 20100402, end: 20100422
  4. MESALAMINE [Suspect]
     Dosage: 800 MG, UNK
     Route: 048
     Dates: start: 20110315, end: 20110405

REACTIONS (6)
  - Myocarditis [Recovered/Resolved]
  - Pyrexia [None]
  - Chest pain [None]
  - Dyspnoea [None]
  - Sinus tachycardia [None]
  - Mitral valve incompetence [None]
